FAERS Safety Report 4612988-4 (Version None)
Quarter: 2005Q1

REPORT INFORMATION
  Report Type: 
  Country: None (occurrence: None)
  Receive Date: 20050318
  Receipt Date: 20050308
  Transmission Date: 20050727
  Serious: Yes (Death, Life-Threatening)
  Sender: FDA-Public Use
  Company Number: GB-JNJFOC-20050200375

PATIENT
  Sex: Female
  Weight: 64 kg

DRUGS (11)
  1. BLINDED; ABCIXIMA [Suspect]
     Route: 042
  2. BLINDED; ABCIXIMA [Suspect]
     Indication: MYOCARDIAL INFARCTION
     Route: 042
  3. RETEPLASE [Suspect]
     Route: 042
  4. RETEPLASE [Suspect]
     Indication: MYOCARDIAL INFARCTION
     Route: 042
  5. PLACEBO [Suspect]
     Indication: MYOCARDIAL INFARCTION
     Route: 042
  6. DOBUTAMINE HCL [Concomitant]
     Indication: HYPOTENSION
     Dosage: DOSE VARIABLE
     Route: 042
  7. LISINOPRIL [Concomitant]
     Route: 049
  8. ASPIRIN [Concomitant]
     Route: 049
  9. CLOPIDOGREL [Concomitant]
     Route: 049
  10. LANSOPRAZOLE [Concomitant]
     Indication: GASTROINTESTINAL DISORDER THERAPY
     Route: 049
  11. SIMVASTATIN [Concomitant]
     Route: 049

REACTIONS (14)
  - ACUTE MYOCARDIAL INFARCTION [None]
  - CARDIOGENIC SHOCK [None]
  - CEREBRAL HAEMORRHAGE [None]
  - CEREBROVASCULAR DISORDER [None]
  - CORONARY ARTERY DISEASE [None]
  - CORONARY OSTIAL STENOSIS [None]
  - DRUG INTERACTION [None]
  - HAEMODYNAMIC INSTABILITY [None]
  - MULTI-ORGAN FAILURE [None]
  - PERICARDIAL EFFUSION [None]
  - PROCEDURAL COMPLICATION [None]
  - VASCULAR CALCIFICATION [None]
  - VENTRICULAR DYSFUNCTION [None]
  - VENTRICULAR HYPERTROPHY [None]
